FAERS Safety Report 21059596 (Version 1)
Quarter: 2022Q3

REPORT INFORMATION
  Report Type: Spontaneous
  Country: US (occurrence: US)
  Receive Date: 20220708
  Receipt Date: 20220708
  Transmission Date: 20221027
  Serious: Yes (Hospitalization, Other)
  Sender: FDA-Public Use
  Company Number: US-JAZZ-2022-US-022349

PATIENT
  Sex: Female

DRUGS (1)
  1. EPIDIOLEX [Suspect]
     Active Substance: CANNABIDIOL
     Indication: Product used for unknown indication
     Dosage: 0.57 ML BID WEEK 1, 1.15 ML BID WEEK 2, 1.73 ML BID WEEK 3, 2.3 ML BID THEREAFTER
     Route: 048
     Dates: start: 202206

REACTIONS (1)
  - Seizure [Unknown]
